FAERS Safety Report 15276367 (Version 1)
Quarter: 2018Q3

REPORT INFORMATION
  Report Type: Spontaneous
  Country: US (occurrence: US)
  Receive Date: 20180814
  Receipt Date: 20180814
  Transmission Date: 20181010
  Serious: No
  Sender: FDA-Public Use
  Company Number: US-MYLANLABS-2018M1060493

PATIENT
  Age: 44 Year
  Sex: Female
  Weight: 44 kg

DRUGS (1)
  1. LEVOTHYROXINE SODIUM TABLETS, USP [Suspect]
     Active Substance: LEVOTHYROXINE SODIUM
     Indication: AUTOIMMUNE THYROIDITIS
     Dosage: 112 ?G, UNK
     Route: 048

REACTIONS (6)
  - Weight decreased [Unknown]
  - Product colour issue [Unknown]
  - Physical product label issue [Unknown]
  - Decreased appetite [Not Recovered/Not Resolved]
  - Personality change [Not Recovered/Not Resolved]
  - Alopecia [Not Recovered/Not Resolved]

NARRATIVE: CASE EVENT DATE: 20180706
